FAERS Safety Report 22803757 (Version 7)
Quarter: 2024Q2

REPORT INFORMATION
  Report Type: Report from Study
  Country: US (occurrence: US)
  Receive Date: 20230809
  Receipt Date: 20240429
  Transmission Date: 20240716
  Serious: Yes (Hospitalization, Other)
  Sender: FDA-Public Use
  Company Number: US-TAKEDA-2023TUS059156

PATIENT
  Sex: Male

DRUGS (3)
  1. MARIBAVIR [Suspect]
     Active Substance: MARIBAVIR
     Indication: Cytomegalovirus infection
     Dosage: 400 MILLIGRAM, BID
     Route: 048
     Dates: start: 20230524, end: 20240404
  2. MARIBAVIR [Suspect]
     Active Substance: MARIBAVIR
     Indication: Post procedural infection
     Dosage: UNK
     Route: 065
  3. MARIBAVIR [Suspect]
     Active Substance: MARIBAVIR
     Indication: Lung transplant

REACTIONS (7)
  - Infective glossitis [Unknown]
  - Cytomegalovirus infection [Unknown]
  - Ear disorder [Unknown]
  - Middle ear effusion [Unknown]
  - Pleural effusion [Unknown]
  - Deafness unilateral [Unknown]
  - Product use issue [Unknown]
